FAERS Safety Report 14240289 (Version 1)
Quarter: 2017Q4

REPORT INFORMATION
  Report Type: Spontaneous
  Country: US (occurrence: US)
  Receive Date: 20171129
  Receipt Date: 20171129
  Transmission Date: 20180321
  Serious: Yes (Life-Threatening, Disabling)
  Sender: FDA-Public Use
  Company Number: None

PATIENT
  Age: 75 Year
  Sex: Male
  Weight: 94.5 kg

DRUGS (11)
  1. FISH OIL [Concomitant]
     Active Substance: FISH OIL
  2. MAGNESIUM [Concomitant]
     Active Substance: MAGNESIUM
  3. NEXIUM [Concomitant]
     Active Substance: ESOMEPRAZOLE MAGNESIUM
  4. VITAMIN B12 [Concomitant]
     Active Substance: CYANOCOBALAMIN
  5. CALCIUM [Concomitant]
     Active Substance: CALCIUM
  6. ASPIRIN. [Concomitant]
     Active Substance: ASPIRIN
  7. L-THYROXINE [Concomitant]
     Active Substance: LEVOTHYROXINE
  8. COQ10 [Concomitant]
     Active Substance: UBIDECARENONE
  9. TAMSULOSIN [Suspect]
     Active Substance: TAMSULOSIN
     Indication: PAINFUL EJACULATION
     Dosage: ?          QUANTITY:2 TABLET(S);?
     Route: 048
     Dates: start: 20170713, end: 20171114
  10. SIMVASTIN [Concomitant]
     Active Substance: SIMVASTATIN
  11. MULTIPLE VITAMIN [Concomitant]
     Active Substance: VITAMINS

REACTIONS (1)
  - Orthostatic hypotension [None]

NARRATIVE: CASE EVENT DATE: 20171114
